FAERS Safety Report 22380722 (Version 1)
Quarter: 2023Q2

REPORT INFORMATION
  Report Type: Report from Study
  Country: CA (occurrence: CA)
  Receive Date: 20230529
  Receipt Date: 20230529
  Transmission Date: 20230722
  Serious: Yes (Other)
  Sender: FDA-Public Use
  Company Number: CA-CELLTRION INC.-2023CA011025

PATIENT

DRUGS (1)
  1. TRUXIMA [Suspect]
     Active Substance: RITUXIMAB-ABBS
     Indication: Thrombocytopenia
     Dosage: 700 MG WEEKLY X 4 DOSES (QUANTITY: 4X500MG VIALS + 8X100MG VIALS = 2800MG)

REACTIONS (2)
  - Thrombocytopenia [Unknown]
  - Off label use [Unknown]
